FAERS Safety Report 10696903 (Version 1)
Quarter: 2015Q1

REPORT INFORMATION
  Report Type: Spontaneous
  Country: US (occurrence: US)
  Receive Date: 20150108
  Receipt Date: 20150108
  Transmission Date: 20150721
  Serious: Yes (Other)
  Sender: FDA-Public Use
  Company Number: US-CIPLA LTD.-2014US03027

PATIENT

DRUGS (9)
  1. EVEROLIMUS [Suspect]
     Active Substance: EVEROLIMUS
     Dosage: 10 MG (LEVEL 1), DAILY
     Route: 048
  2. CARBOPLATIN. [Suspect]
     Active Substance: CARBOPLATIN
     Indication: SQUAMOUS CELL CARCINOMA OF HEAD AND NECK
     Dosage: 2 MG/ML/MIN ON DAYS 1, 8, AND 15 OF EACH 28 DAY CYCLE
  3. EVEROLIMUS [Suspect]
     Active Substance: EVEROLIMUS
     Indication: SQUAMOUS CELL CARCINOMA OF HEAD AND NECK
     Dosage: 2.5 MG (LEVEL 1), DAILY
     Route: 048
  4. DIPHENHYDRAMINE [Concomitant]
     Active Substance: DIPHENHYDRAMINE
     Indication: PREMEDICATION
     Dosage: 50 MG, UNK
     Route: 042
  5. EVEROLIMUS [Suspect]
     Active Substance: EVEROLIMUS
     Dosage: 7.5 MG (LEVEL 1), DAILY
     Route: 048
  6. CETUXIMAB [Suspect]
     Active Substance: CETUXIMAB
     Indication: SQUAMOUS CELL CARCINOMA OF HEAD AND NECK
     Dosage: 400 MG/M2, LOADING DOSE ON DAY 1
  7. CETUXIMAB [Suspect]
     Active Substance: CETUXIMAB
     Dosage: 250 MG/M2 (WEEKLY), ON DAYS 8, 15, AND 22 OF EACH 28 DAY CYCLE
  8. DEXAMETHASONE. [Concomitant]
     Active Substance: DEXAMETHASONE
     Indication: PREMEDICATION
     Dosage: 20 MG, UNK
  9. EVEROLIMUS [Suspect]
     Active Substance: EVEROLIMUS
     Dosage: 5 MG (LEVEL 1), DAILY
     Route: 048

REACTIONS (1)
  - Sepsis [Unknown]
